FAERS Safety Report 15197293 (Version 1)
Quarter: 2018Q3

REPORT INFORMATION
  Report Type: Spontaneous
  Country: IT (occurrence: IT)
  Receive Date: 20180725
  Receipt Date: 20180725
  Transmission Date: 20181010
  Serious: Yes (Hospitalization)
  Sender: FDA-Public Use
  Company Number: IT-MYLANLABS-2018M1053853

PATIENT
  Age: 95 Year
  Sex: Female

DRUGS (3)
  1. TICLOPIDINE [Suspect]
     Active Substance: TICLOPIDINE
     Dosage: 250 MG, QD
     Route: 048
     Dates: start: 20180403
  2. ALLOPURINOL. [Suspect]
     Active Substance: ALLOPURINOL
     Indication: HYPERURICAEMIA
     Dosage: 150 MG, QD
     Dates: start: 20180301, end: 20180305
  3. TICLOPIDINE [Suspect]
     Active Substance: TICLOPIDINE
     Indication: ARTERIAL DISORDER
     Dosage: 500 MG, QD
     Dates: start: 20180313, end: 20180403

REACTIONS (3)
  - Urticaria [Unknown]
  - Jaundice [Unknown]
  - Hyperbilirubinaemia [Unknown]

NARRATIVE: CASE EVENT DATE: 20180405
